FAERS Safety Report 21332729 (Version 6)
Quarter: 2023Q2

REPORT INFORMATION
  Report Type: Spontaneous
  Country: GB (occurrence: GB)
  Receive Date: 20220914
  Receipt Date: 20230630
  Transmission Date: 20230722
  Serious: Yes (Hospitalization, Other)
  Sender: FDA-Public Use
  Company Number: GB-Hikma Pharmaceuticals USA Inc.-GB-H14001-22-02294

PATIENT

DRUGS (3)
  1. CARBOPLATIN [Suspect]
     Active Substance: CARBOPLATIN
     Indication: Anal squamous cell carcinoma
     Dosage: AUC 5 MG/ML PER MINUTE
     Route: 042
  2. RETIFANLIMAB [Suspect]
     Active Substance: RETIFANLIMAB
     Indication: Anal squamous cell carcinoma
     Dosage: 500 MILLIGRAM
     Route: 042
     Dates: start: 20220623
  3. PACLITAXEL [Suspect]
     Active Substance: PACLITAXEL
     Indication: Anal squamous cell carcinoma
     Dosage: 80 MILLIGRAM/SQ. METER
     Route: 042

REACTIONS (5)
  - Food intolerance [Unknown]
  - Abdominal distension [Unknown]
  - Intestinal obstruction [Recovering/Resolving]
  - Stoma creation [Unknown]
  - Nausea [Unknown]

NARRATIVE: CASE EVENT DATE: 20220727
